FAERS Safety Report 24804664 (Version 1)
Quarter: 2025Q1

REPORT INFORMATION
  Report Type: Spontaneous
  Country: TN (occurrence: TN)
  Receive Date: 20250103
  Receipt Date: 20250103
  Transmission Date: 20250408
  Serious: Yes (Hospitalization)
  Sender: MYLAN
  Company Number: TN-MYLANLABS-2024M1117617

PATIENT
  Age: 34 Year
  Sex: Female

DRUGS (3)
  1. METHOTREXATE [Suspect]
     Active Substance: METHOTREXATE
     Indication: Takayasu^s arteritis
     Dosage: 10 MILLIGRAM, QW
     Route: 065
  2. METHYLPREDNISOLONE [Suspect]
     Active Substance: METHYLPREDNISOLONE
     Indication: Takayasu^s arteritis
     Dosage: 1 GRAM, QD, FOR 3 DAYS
     Route: 042
  3. PREDNISONE [Suspect]
     Active Substance: PREDNISONE
     Indication: Takayasu^s arteritis
     Dosage: 1 MILLIGRAM/KILOGRAM, QD
     Route: 048

REACTIONS (4)
  - Drug ineffective [Unknown]
  - Drug intolerance [Unknown]
  - Gastrointestinal disorder [Unknown]
  - Drug ineffective for unapproved indication [Unknown]
